FAERS Safety Report 7568878-0 (Version None)
Quarter: 2011Q2

REPORT INFORMATION
  Report Type: 
  Country: None (occurrence: None)
  Receive Date: 20110623
  Receipt Date: 20110620
  Transmission Date: 20111010
  Serious: Yes (Hospitalization, Other)
  Sender: FDA-Public Use
  Company Number: US-PFIZER INC-2011136896

PATIENT
  Sex: Male

DRUGS (2)
  1. PREDNISONE [Suspect]
  2. MEDROL [Suspect]

REACTIONS (2)
  - URINARY TRACT INFECTION [None]
  - DRUG INEFFECTIVE [None]
